FAERS Safety Report 4420424-6 (Version None)
Quarter: 2004Q3

REPORT INFORMATION
  Report Type: 
  Country: None (occurrence: None)
  Receive Date: 20040809
  Receipt Date: 20040225
  Transmission Date: 20050211
  Serious: No
  Sender: FDA-Public Use
  Company Number: US-GLAXOSMITHKLINE-A0499852A

PATIENT
  Age: 40 Year
  Sex: Female

DRUGS (3)
  1. PAXIL CR [Suspect]
     Dosage: 37.5MG PER DAY
     Route: 048
     Dates: start: 20041101
  2. INSULIN [Concomitant]
  3. OMEGA 3 [Concomitant]

REACTIONS (2)
  - NAUSEA [None]
  - WEIGHT INCREASED [None]
